FAERS Safety Report 16905510 (Version 2)
Quarter: 2019Q4

REPORT INFORMATION
  Report Type: Spontaneous
  Country: US (occurrence: US)
  Receive Date: 20191010
  Receipt Date: 20191030
  Transmission Date: 20200122
  Serious: Yes (Death, Hospitalization)
  Sender: FDA-Public Use
  Company Number: US-TEVA-2019-US-1118781

PATIENT
  Age: 21 Year
  Sex: Male

DRUGS (4)
  1. TRIAMCINOLONE [Suspect]
     Active Substance: TRIAMCINOLONE
     Indication: RETINAL PIGMENT EPITHELIOPATHY
     Dosage: ROUTE: INTRAVITREAL
     Route: 050
  2. MANNITOL. [Suspect]
     Active Substance: MANNITOL
     Indication: BRAIN OEDEMA
     Route: 042
  3. PREDNISONE. [Suspect]
     Active Substance: PREDNISONE
     Indication: RETINAL PIGMENT EPITHELIOPATHY
     Dosage: 80 MILLIGRAM DAILY;
     Route: 048
  4. SODIUM CHLORIDE. [Suspect]
     Active Substance: SODIUM CHLORIDE
     Indication: BRAIN OEDEMA
     Route: 042

REACTIONS (1)
  - Drug ineffective [Fatal]
